FAERS Safety Report 11824364 (Version 4)
Quarter: 2016Q1

REPORT INFORMATION
  Report Type: Report from Study
  Country: JP (occurrence: JP)
  Receive Date: 20151210
  Receipt Date: 20160223
  Transmission Date: 20160525
  Serious: Yes (Hospitalization, Other)
  Sender: FDA-Public Use
  Company Number: JP-NAPPMUNDI-GBR-2015-0032663

PATIENT
  Age: 42 Year
  Sex: Female

DRUGS (7)
  1. NABOAL                             /00372302/ [Concomitant]
     Indication: BACK PAIN
     Dosage: 140 MG, DAILY
     Route: 061
     Dates: start: 20150612, end: 20150831
  2. REBAMIPIDE [Concomitant]
     Active Substance: REBAMIPIDE
     Indication: BACK PAIN
     Dosage: 200 MG, DAILY
     Route: 048
     Dates: start: 20150612, end: 20150831
  3. REBAMIPIDE [Concomitant]
     Active Substance: REBAMIPIDE
     Indication: PROPHYLAXIS
  4. CELECOX [Concomitant]
     Active Substance: CELECOXIB
     Indication: BACK PAIN
     Dosage: 200 MG, DAILY
     Route: 048
     Dates: start: 20150612, end: 20150831
  5. BTDS 5 MG [Suspect]
     Active Substance: BUPRENORPHINE
     Indication: ANALGESIC THERAPY
     Dosage: 5 MCG, Q1H
     Route: 062
     Dates: start: 20150616, end: 20150728
  6. PRIMPERAN [Concomitant]
     Active Substance: METOCLOPRAMIDE HYDROCHLORIDE
     Indication: PROPHYLAXIS
     Dosage: 15 MG, DAILY
     Route: 048
     Dates: start: 20150616, end: 20150728
  7. FELBINAC [Concomitant]
     Active Substance: FELBINAC
     Indication: BACK PAIN
     Dosage: 40 G, SEVERAL TIMES A DAY
     Route: 061
     Dates: start: 20150612, end: 20150713

REACTIONS (4)
  - Dyspepsia [Not Recovered/Not Resolved]
  - Vomiting [Recovering/Resolving]
  - Nausea [Not Recovered/Not Resolved]
  - Intestinal obstruction [Not Recovered/Not Resolved]

NARRATIVE: CASE EVENT DATE: 20150617
